FAERS Safety Report 4342668-4 (Version None)
Quarter: 2004Q2

REPORT INFORMATION
  Report Type: 
  Country: None (occurrence: None)
  Receive Date: 20040416
  Receipt Date: 20040405
  Transmission Date: 20050107
  Serious: Yes (Death, Hospitalization)
  Sender: FDA-Public Use
  Company Number: 2004020422

PATIENT
  Age: 77 Year
  Sex: Female

DRUGS (2)
  1. SINEQUAN [Suspect]
     Indication: DEPRESSION
     Dosage: 150 MG (BID), ORAL
     Route: 048
  2. BENDROFLUMETHIAZIDE (BENDROFLUMETHIAZIDE) [Suspect]
     Indication: HYPERTENSION
     Dosage: 2.5 MG (DAILY), ORAL
     Route: 048

REACTIONS (4)
  - CONFUSIONAL STATE [None]
  - CONVULSION [None]
  - DROWNING [None]
  - HYPONATRAEMIA [None]
